FAERS Safety Report 7086290-8 (Version None)
Quarter: 2010Q4

REPORT INFORMATION
  Report Type: 
  Country: None (occurrence: None)
  Receive Date: 20101105
  Receipt Date: 20101025
  Transmission Date: 20110411
  Serious: Yes (Other)
  Sender: FDA-Public Use
  Company Number: GB-MERCK-1010GBR00100

PATIENT
  Age: 50 Year
  Sex: Male

DRUGS (4)
  1. SINGULAIR [Suspect]
     Indication: ASTHMA
     Route: 048
     Dates: start: 20080101, end: 20100701
  2. LITHIUM CARBONATE [Concomitant]
     Indication: BIPOLAR DISORDER
     Route: 048
     Dates: start: 20090101
  3. QUETIAPINE FUMARATE [Concomitant]
     Indication: BIPOLAR DISORDER
     Route: 065
     Dates: start: 20090101
  4. VALPROATE SODIUM [Concomitant]
     Indication: BIPOLAR DISORDER
     Route: 065
     Dates: start: 20090101

REACTIONS (2)
  - DEPRESSION [None]
  - SUICIDAL IDEATION [None]
